FAERS Safety Report 7095848-1 (Version None)
Quarter: 2010Q4

REPORT INFORMATION
  Report Type: 
  Country: None (occurrence: None)
  Receive Date: 20101101
  Receipt Date: 20101020
  Transmission Date: 20110411
  Serious: Yes (Disabling)
  Sender: FDA-Public Use
  Company Number: AUR-APL-2010-02635

PATIENT
  Age: 38 Year
  Sex: Male
  Weight: 87 kg

DRUGS (4)
  1. SIMVASTATIN [Suspect]
     Indication: HYPERLIPIDAEMIA
     Dosage: 40MG - DAILY - ORAL
     Route: 048
     Dates: start: 20100922, end: 20100926
  2. CLOZAPINE [Concomitant]
  3. FLUVOXAMINE MALEATE [Concomitant]
  4. VALPROATE SODIUM [Concomitant]

REACTIONS (2)
  - CONDITION AGGRAVATED [None]
  - PARANOIA [None]
